FAERS Safety Report 16659377 (Version 3)
Quarter: 2019Q3

REPORT INFORMATION
  Report Type: Spontaneous
  Country: JP (occurrence: JP)
  Receive Date: 20190802
  Receipt Date: 20190904
  Transmission Date: 20191004
  Serious: Yes (Hospitalization, Other)
  Sender: FDA-Public Use
  Company Number: JP-BRISTOL-MYERS SQUIBB COMPANY-BMS-2019-075330

PATIENT
  Age: 63 Year
  Sex: Male

DRUGS (2)
  1. OPDIVO [Suspect]
     Active Substance: NIVOLUMAB
     Indication: METASTATIC RENAL CELL CARCINOMA
     Dosage: FOUR TIMES OVER 2 MONTHS AND NINE TIMES OVER 5 MONTHS
     Route: 041
  2. YERVOY [Suspect]
     Active Substance: IPILIMUMAB
     Indication: METASTATIC RENAL CELL CARCINOMA
     Dosage: FOUR TIMES OVER 2 MONTHS AND NINE TIMES OVER 5 MONTHS
     Route: 065

REACTIONS (3)
  - Fulminant type 1 diabetes mellitus [Unknown]
  - Rash [Unknown]
  - Diabetic ketoacidosis [Unknown]
